FAERS Safety Report 7609004-9 (Version None)
Quarter: 2011Q3

REPORT INFORMATION
  Report Type: 
  Country: None (occurrence: None)
  Receive Date: 20110713
  Receipt Date: 20110713
  Transmission Date: 20111222
  Serious: Yes (Other)
  Sender: FDA-Public Use
  Company Number: None

PATIENT
  Age: 45 Year
  Sex: Male
  Weight: 90.7194 kg

DRUGS (1)
  1. LEVAQUIN [Suspect]
     Indication: UPPER RESPIRATORY TRACT INFECTION
     Dosage: 500MG DAILY PO
     Route: 048
     Dates: start: 20110406, end: 20110415

REACTIONS (3)
  - GAIT DISTURBANCE [None]
  - MOBILITY DECREASED [None]
  - ACTIVITIES OF DAILY LIVING IMPAIRED [None]
